FAERS Safety Report 24680211 (Version 1)
Quarter: 2024Q4

REPORT INFORMATION
  Report Type: Spontaneous
  Country: US (occurrence: US)
  Receive Date: 20241129
  Receipt Date: 20241129
  Transmission Date: 20250115
  Serious: Yes (Other)
  Sender: BRACCO
  Company Number: US-BRACCO-2024US02953

PATIENT
  Age: 50 Year
  Sex: Male

DRUGS (3)
  1. LUMASON [Suspect]
     Active Substance: SULFUR HEXAFLUORIDE
     Indication: Ultrasound abdomen
     Dosage: 1 ML, SINGLE
     Route: 042
     Dates: start: 20240522, end: 20240522
  2. LUMASON [Suspect]
     Active Substance: SULFUR HEXAFLUORIDE
     Indication: Ultrasound abdomen
     Dosage: 1 ML, SINGLE
     Route: 042
     Dates: start: 20240522, end: 20240522
  3. LUMASON [Suspect]
     Active Substance: SULFUR HEXAFLUORIDE
     Indication: Ultrasound abdomen
     Dosage: 1 ML, SINGLE
     Route: 042
     Dates: start: 20240522, end: 20240522

REACTIONS (6)
  - Blood pressure decreased [Unknown]
  - Paraesthesia [Unknown]
  - Hyperhidrosis [Unknown]
  - Tremor [Unknown]
  - Visual impairment [Unknown]
  - Flushing [Unknown]

NARRATIVE: CASE EVENT DATE: 20240522
